FAERS Safety Report 9203578 (Version 3)
Quarter: 2013Q4

REPORT INFORMATION
  Report Type: Report from Study
  Country: NZ (occurrence: NZ)
  Receive Date: 20130402
  Receipt Date: 20131008
  Transmission Date: 20140711
  Serious: Yes (Hospitalization)
  Sender: FDA-Public Use
  Company Number: PHHY2013NZ029754

PATIENT
  Sex: Male

DRUGS (3)
  1. CLOZARIL [Suspect]
     Dosage: UNK
     Dates: start: 20110822
  2. CLOZARIL [Suspect]
     Dosage: UNK
     Dates: start: 20130326
  3. OLANZAPINE [Suspect]
     Dosage: UNK

REACTIONS (1)
  - Psychiatric decompensation [Unknown]
